FAERS Safety Report 8426524-8 (Version None)
Quarter: 2012Q2

REPORT INFORMATION
  Report Type: 
  Country: None (occurrence: None)
  Receive Date: 20120611
  Receipt Date: 20120529
  Transmission Date: 20120825
  Serious: Yes (Other)
  Sender: FDA-Public Use
  Company Number: JP-PFIZER INC-2012131370

PATIENT
  Age: 69 Year
  Sex: Female

DRUGS (8)
  1. NOVORAPID [Concomitant]
     Dosage: UNK
  2. NOVOLIN N [Concomitant]
     Dosage: UNK
  3. LIPITOR [Concomitant]
     Dosage: UNK
  4. MIGLITOL [Suspect]
     Indication: TYPE 2 DIABETES MELLITUS
     Dosage: 50 MG, 1X/DAY
     Route: 048
     Dates: start: 20101202, end: 20110105
  5. DIOVAN [Concomitant]
     Dosage: UNK
  6. MUCOSTA [Concomitant]
     Dosage: UNK
  7. MIGLITOL [Suspect]
     Dosage: 50 MG, 2X/DAY
     Route: 048
     Dates: start: 20110106
  8. LANSOPRAZOLE [Concomitant]
     Dosage: UNK

REACTIONS (1)
  - VENTRICULAR EXTRASYSTOLES [None]
